FAERS Safety Report 6227439-6 (Version None)
Quarter: 2009Q2

REPORT INFORMATION
  Report Type: 
  Country: None (occurrence: None)
  Receive Date: 20090612
  Receipt Date: 20090608
  Transmission Date: 20091009
  Serious: Yes (Death, Hospitalization, Other)
  Sender: FDA-Public Use
  Company Number: US-ROCHE-637066

PATIENT
  Age: 19 Year
  Sex: Female

DRUGS (3)
  1. CELLCEPT [Suspect]
     Indication: PROPHYLAXIS
     Route: 065
  2. NEORAL [Suspect]
     Indication: PROPHYLAXIS
     Route: 065
  3. PREDNISONE [Suspect]
     Indication: PROPHYLAXIS
     Route: 065

REACTIONS (8)
  - BILIARY CIRRHOSIS [None]
  - CHOLANGITIS SCLEROSING [None]
  - HYPOTENSION [None]
  - MULTI-ORGAN FAILURE [None]
  - PULMONARY HYPERTENSION [None]
  - RENAL FAILURE [None]
  - RESPIRATORY FAILURE [None]
  - RIGHT VENTRICULAR FAILURE [None]
